FAERS Safety Report 11192529 (Version 1)
Quarter: 2015Q2

REPORT INFORMATION
  Report Type: Spontaneous
  Country: US (occurrence: US)
  Receive Date: 20150616
  Receipt Date: 20150616
  Transmission Date: 20150821
  Serious: No
  Sender: FDA-Public Use
  Company Number: US-PFIZER INC-2015195903

PATIENT
  Sex: Female

DRUGS (1)
  1. ADVIL [Suspect]
     Active Substance: IBUPROFEN
     Dosage: UNK

REACTIONS (5)
  - Throat irritation [Unknown]
  - Sensation of foreign body [Unknown]
  - Oropharyngeal pain [Unknown]
  - Product formulation issue [Unknown]
  - Foreign body [Unknown]

NARRATIVE: CASE EVENT DATE: 20150608
